FAERS Safety Report 7306318 (Version 2)
Quarter: 2012Q4

REPORT INFORMATION
  Report Type: 
  Country: US (occurrence: US)
  Receive Date: 20100305
  Receipt Date: 20120926
  Transmission Date: 20130627
  Serious: Yes (Death)
  Sender: FDA-Public Use
  Company Number: US-MYLANLABS-2010S1003058

PATIENT
  Age: 62 Year
  Sex: Female
  Weight: 65.77 kg

DRUGS (10)
  1. FENTANYL TRANSDERMAL SYSTEM [Suspect]
     Indication: PAIN
     Dosage: q3d
     Route: 062
     Dates: end: 20081122
  2. CARDIZEM [Concomitant]
  3. COUMADIN [Concomitant]
  4. METOPROLOL [Concomitant]
  5. NEURONTIN [Concomitant]
  6. AMITIZA [Concomitant]
  7. ZANTAC [Concomitant]
  8. CLONAZEPAM [Concomitant]
  9. DIGOXIN [Concomitant]
  10. OXYGEN [Concomitant]

REACTIONS (3)
  - Toxicity to various agents [Fatal]
  - Overdose [Fatal]
  - Incorrect route of drug administration [Fatal]
